FAERS Safety Report 4833262-7 (Version None)
Quarter: 2005Q4

REPORT INFORMATION
  Report Type: 
  Country: None (occurrence: None)
  Receive Date: 20051117
  Receipt Date: 20051103
  Transmission Date: 20060501
  Serious: Yes (Hospitalization)
  Sender: FDA-Public Use
  Company Number: DE_051117487

PATIENT
  Age: 49 Year
  Sex: Female

DRUGS (3)
  1. CYMBALTA [Suspect]
     Indication: DEPRESSION
     Dosage: 60 MG DAY
     Dates: start: 20050830, end: 20050830
  2. LEVOTHYROXINE SODIUM [Concomitant]
  3. OXYCODONE HCL [Concomitant]

REACTIONS (5)
  - BLOOD PRESSURE INCREASED [None]
  - CHEST DISCOMFORT [None]
  - HEADACHE [None]
  - NAUSEA [None]
  - THERAPY NON-RESPONDER [None]
